FAERS Safety Report 9675456 (Version 2)
Quarter: 2013Q4

REPORT INFORMATION
  Report Type: Spontaneous
  Country: JP (occurrence: JP)
  Receive Date: 20131107
  Receipt Date: 20131107
  Transmission Date: 20140711
  Serious: Yes (Other)
  Sender: FDA-Public Use
  Company Number: JP-PFIZER INC-2013299061

PATIENT
  Age: 75 Year
  Sex: Male

DRUGS (4)
  1. NORVASC [Suspect]
     Indication: HYPERTENSION
     Dosage: 10 MG, 1X/DAY
     Route: 048
  2. NORVASC [Suspect]
     Dosage: 10 MG, 2X/DAY
     Route: 048
     Dates: start: 20131017, end: 20131025
  3. JANUVIA [Concomitant]
     Route: 048
  4. AVAPRO [Concomitant]
     Indication: HYPERTENSION
     Dosage: UNK
     Route: 048

REACTIONS (2)
  - Therapeutic response decreased [Recovered/Resolved]
  - Prescribed overdose [Unknown]
